FAERS Safety Report 4578237-0 (Version None)
Quarter: 2005Q1

REPORT INFORMATION
  Report Type: 
  Country: None (occurrence: None)
  Receive Date: 20050209
  Receipt Date: 20050131
  Transmission Date: 20050727
  Serious: Yes (Death)
  Sender: FDA-Public Use
  Company Number: 2005US000148

PATIENT
  Sex: Female

DRUGS (1)
  1. ADENOSCAN [Suspect]
     Indication: SCAN MYOCARDIAL PERFUSION
     Dosage: INTRAVENOUS
     Route: 042
     Dates: start: 20050101, end: 20050101

REACTIONS (2)
  - INFUSION RELATED REACTION [None]
  - RESPIRATORY ARREST [None]
